FAERS Safety Report 8886588 (Version 1)
Quarter: 2012Q4

REPORT INFORMATION
  Report Type: 
  Country: US (occurrence: US)
  Receive Date: 20121105
  Receipt Date: 20121105
  Transmission Date: 20130627
  Serious: Yes (Hospitalization)
  Sender: FDA-Public Use
  Company Number: US-ROXANE LABORATORIES, INC.-2012-RO-02335RO

PATIENT
  Age: 68 Year
  Sex: Male
  Weight: 68 kg

DRUGS (16)
  1. DEXAMETHASONE [Suspect]
     Indication: MULTIPLE MYELOMA
     Route: 048
     Dates: start: 20120529, end: 20120601
  2. DEXAMETHASONE [Suspect]
     Route: 048
     Dates: start: 20120703, end: 20121022
  3. INVESTIGATIONAL DRUG [Suspect]
     Indication: MULTIPLE MYELOMA
     Route: 042
     Dates: start: 20120409, end: 20120601
  4. INVESTIGATIONAL DRUG [Suspect]
     Route: 042
     Dates: start: 20120703, end: 20121022
  5. MAGNESIUM [Concomitant]
     Dates: start: 20071205
  6. FOLIC ACID [Concomitant]
     Dates: start: 20060209
  7. VITAMIN B6 [Concomitant]
     Dates: start: 20070903
  8. VITAMIN B12 [Concomitant]
     Dates: start: 20071205
  9. VITAMIN D3 [Concomitant]
     Dates: start: 20100928
  10. ZOMETA [Concomitant]
     Dates: start: 20110322
  11. OXYCONTIN [Concomitant]
     Dates: start: 20120402
  12. MYCLEX TROCHES [Concomitant]
     Dates: start: 20120402
  13. COMPAZINE [Concomitant]
     Dates: start: 20120413
  14. ONDANSETRON [Concomitant]
     Dates: start: 20120503
  15. ACYCLOVIR [Concomitant]
     Dates: start: 20080529
  16. OXYCODONE [Concomitant]
     Dates: start: 20060213

REACTIONS (3)
  - Myocardial ischaemia [Unknown]
  - Angina unstable [Recovered/Resolved]
  - Acute coronary syndrome [Unknown]
